FAERS Safety Report 13803149 (Version 1)
Quarter: 2017Q3

REPORT INFORMATION
  Report Type: Report from Study
  Country: US (occurrence: US)
  Receive Date: 20170728
  Receipt Date: 20170728
  Transmission Date: 20171127
  Serious: Yes (Other)
  Sender: FDA-Public Use
  Company Number: US-TEVA-791019ACC

PATIENT
  Age: 60 Year
  Sex: Female

DRUGS (11)
  1. GABAPENTIN. [Concomitant]
     Active Substance: GABAPENTIN
  2. SYNTHROID [Concomitant]
     Active Substance: LEVOTHYROXINE SODIUM
  3. ATENOLOL. [Concomitant]
     Active Substance: ATENOLOL
  4. CALCITONIN SPRAY 200/ACT [Concomitant]
  5. AMPYRA [Concomitant]
     Active Substance: DALFAMPRIDINE
  6. APAP/CODEINE [Concomitant]
     Active Substance: ACETAMINOPHEN\CODEINE PHOSPHATE
     Dosage: 300/60
  7. PROPANOLOL ER [Concomitant]
  8. COPAXONE [Suspect]
     Active Substance: GLATIRAMER ACETATE
     Indication: MULTIPLE SCLEROSIS
     Route: 058
     Dates: start: 20160314
  9. OXYBUTYNIN ER [Concomitant]
     Active Substance: OXYBUTYNIN
  10. BACLOFEN. [Concomitant]
     Active Substance: BACLOFEN
  11. DIAZEPAM. [Concomitant]
     Active Substance: DIAZEPAM

REACTIONS (2)
  - Fall [Unknown]
  - Upper limb fracture [Unknown]

NARRATIVE: CASE EVENT DATE: 201706
